FAERS Safety Report 7905839-3 (Version None)
Quarter: 2011Q4

REPORT INFORMATION
  Report Type: 
  Country: None (occurrence: None)
  Receive Date: 20111108
  Receipt Date: 20111025
  Transmission Date: 20120403
  Serious: Yes (Life-Threatening, Hospitalization, Disabling, Other)
  Sender: FDA-Public Use
  Company Number: 2011MA015708

PATIENT
  Age: 18 Year
  Sex: Female

DRUGS (2)
  1. CLONAZEPAM [Suspect]
     Indication: SCHIZOPHRENIA
     Dosage: 4 MG;QD
  2. RISPERIDONE [Suspect]
     Indication: SCHIZOPHRENIA
     Dosage: 8 MG;QD

REACTIONS (8)
  - SELF INJURIOUS BEHAVIOUR [None]
  - TACHYCARDIA [None]
  - TORTICOLLIS [None]
  - OCULOGYRIC CRISIS [None]
  - BLOOD CREATINE PHOSPHOKINASE INCREASED [None]
  - TARDIVE DYSKINESIA [None]
  - HYPERKINESIA [None]
  - SLEEP DISORDER [None]
